FAERS Safety Report 12749015 (Version 2)
Quarter: 2017Q3

REPORT INFORMATION
  Report Type: Spontaneous
  Country: US (occurrence: US)
  Receive Date: 20160915
  Receipt Date: 20170914
  Transmission Date: 20171127
  Serious: No
  Sender: FDA-Public Use
  Company Number: US-ASTELLAS-2016US011357

PATIENT
  Age: 68 Year
  Sex: Male

DRUGS (1)
  1. XTANDI [Suspect]
     Active Substance: ENZALUTAMIDE
     Indication: PROSTATE CANCER
     Route: 048
     Dates: start: 20150313

REACTIONS (8)
  - Throat irritation [Recovered/Resolved]
  - Paraesthesia [Unknown]
  - Rhinorrhoea [Recovered/Resolved]
  - Confusional state [Unknown]
  - Myalgia [Unknown]
  - Prostatic specific antigen increased [Unknown]
  - Drug effect incomplete [Unknown]
  - Fatigue [Unknown]

NARRATIVE: CASE EVENT DATE: 20160324
